FAERS Safety Report 5469550-3 (Version None)
Quarter: 2007Q3

REPORT INFORMATION
  Report Type: 
  Country: None (occurrence: None)
  Receive Date: 20070927
  Receipt Date: 20070920
  Transmission Date: 20080115
  Serious: Yes (Life-Threatening, Hospitalization)
  Sender: FDA-Public Use
  Company Number: B0488745A

PATIENT
  Age: 35 Year
  Sex: Female

DRUGS (12)
  1. ARIXTRA [Suspect]
     Indication: THROMBOSIS PROPHYLAXIS
     Route: 058
     Dates: start: 20070801, end: 20070826
  2. VITAMIN B COMPLEX WITH VITAMIN C [Concomitant]
     Indication: RENAL FAILURE
     Route: 048
     Dates: start: 20070101
  3. ARANESP [Concomitant]
     Indication: RENAL FAILURE
     Route: 058
     Dates: start: 20070101
  4. CALCICHEW [Concomitant]
     Indication: RENAL FAILURE
     Dosage: 500MG TWICE PER DAY
     Route: 048
     Dates: start: 20070101
  5. FURESIS [Concomitant]
     Indication: RENAL FAILURE
     Dosage: 80MG THREE TIMES PER DAY
     Route: 048
     Dates: start: 20070101
  6. HUMALOG [Concomitant]
     Indication: DIABETES MELLITUS
     Route: 058
     Dates: start: 20070101
  7. PROTAPHANE [Concomitant]
     Indication: DIABETES MELLITUS
     Route: 058
     Dates: start: 20070101
  8. PANADOL FORTE [Concomitant]
     Indication: PAIN
     Dosage: 1G THREE TIMES PER DAY
     Route: 048
     Dates: start: 20070801
  9. PANTOPRAZOLE SODIUM [Concomitant]
     Dosage: 40MG PER DAY
     Route: 048
     Dates: start: 20070817
  10. METRONIDAZOLUM [Concomitant]
     Dosage: 250MG THREE TIMES PER DAY
     Route: 048
     Dates: start: 20070822, end: 20070830
  11. VANCOMYCIN [Concomitant]
     Indication: PERITONITIS
     Dosage: 2G ALTERNATE DAYS
     Route: 033
     Dates: start: 20070820, end: 20070830
  12. CEFTAZIDIM [Concomitant]
     Indication: PERITONITIS
     Dosage: 250MG FOUR TIMES PER DAY
     Route: 042
     Dates: start: 20070817, end: 20070830

REACTIONS (13)
  - ABDOMINAL DISTENSION [None]
  - ABDOMINAL PAIN [None]
  - ASCITES [None]
  - CATHETER SITE HAEMORRHAGE [None]
  - COAGULATION FACTOR DECREASED [None]
  - COAGULATION FACTOR V LEVEL DECREASED [None]
  - COAGULATION FACTOR XIII LEVEL DECREASED [None]
  - HAEMATOMA [None]
  - HAEMOGLOBIN DECREASED [None]
  - INTRA-ABDOMINAL HAEMORRHAGE [None]
  - PERITONITIS [None]
  - PROTHROMBIN TIME PROLONGED [None]
  - THROMBIN TIME PROLONGED [None]
